FAERS Safety Report 23064317 (Version 1)
Quarter: 2023Q4

REPORT INFORMATION
  Report Type: Spontaneous
  Country: US (occurrence: US)
  Receive Date: 20231013
  Receipt Date: 20231013
  Transmission Date: 20240109
  Serious: Yes (Life-Threatening, Hospitalization)
  Sender: FDA-Public Use
  Company Number: US-BAUSCH-BL-2023-015150

PATIENT
  Age: 35 Year
  Sex: Female

DRUGS (1)
  1. BUPROPION [Suspect]
     Active Substance: BUPROPION
     Indication: Product used for unknown indication
     Dosage: TOOK 30 TABLES OF THE EXTENDED-RELEASE BUPROPION
     Route: 048

REACTIONS (4)
  - Cardiogenic shock [Recovered/Resolved]
  - Ventricular tachycardia [Recovered/Resolved]
  - Seizure [Recovered/Resolved]
  - Intentional overdose [Unknown]
